FAERS Safety Report 14972571 (Version 1)
Quarter: 2018Q2

REPORT INFORMATION
  Report Type: Spontaneous
  Country: US (occurrence: US)
  Receive Date: 20180514
  Receipt Date: 20180514
  Transmission Date: 20180711
  Serious: Yes (Disabling)
  Sender: FDA-Public Use
  Company Number: None

PATIENT
  Sex: Female
  Weight: 49.5 kg

DRUGS (8)
  1. NICOTINAMIDE [Concomitant]
     Active Substance: NIACINAMIDE
  2. VITAMIN B12 [Concomitant]
     Active Substance: CYANOCOBALAMIN
  3. LIPITOR [Concomitant]
     Active Substance: ATORVASTATIN CALCIUM
  4. AREDS 2 [Concomitant]
     Active Substance: MINERALS\VITAMINS
  5. ATACAND [Concomitant]
     Active Substance: CANDESARTAN CILEXETIL
  6. THYROXINE [Concomitant]
     Active Substance: LEVOTHYROXINE
  7. FUROSEMIDE. [Suspect]
     Active Substance: FUROSEMIDE
     Indication: HYPERTENSION
     Dosage: ?          QUANTITY:1 TABLET(S);?
     Route: 048
  8. TRAVATAN [Concomitant]
     Active Substance: TRAVOPROST

REACTIONS (2)
  - Deafness [None]
  - Tinnitus [None]
